FAERS Safety Report 22274412 (Version 1)
Quarter: 2023Q2

REPORT INFORMATION
  Report Type: Spontaneous
  Country: IT (occurrence: IT)
  Receive Date: 20230502
  Receipt Date: 20230502
  Transmission Date: 20230722
  Serious: Yes (Hospitalization)
  Sender: FDA-Public Use
  Company Number: IT-BAYER-2023A058285

PATIENT
  Sex: Female

DRUGS (2)
  1. CIPROFLOXACIN [Suspect]
     Active Substance: CIPROFLOXACIN
     Dosage: UNK
     Dates: start: 201803
  2. LEVOFLOXACIN [Concomitant]
     Active Substance: LEVOFLOXACIN

REACTIONS (11)
  - Gait inability [None]
  - Arthralgia [None]
  - Tendon pain [None]
  - Mobility decreased [None]
  - Paraesthesia [None]
  - Brain fog [None]
  - Insomnia [None]
  - Hypoaesthesia [None]
  - Photosensitivity reaction [None]
  - Headache [None]
  - Catheter site urticaria [None]
